FAERS Safety Report 15355093 (Version 1)
Quarter: 2018Q3

REPORT INFORMATION
  Report Type: Spontaneous
  Country: US (occurrence: US)
  Receive Date: 20180906
  Receipt Date: 20180906
  Transmission Date: 20181010
  Serious: No
  Sender: FDA-Public Use
  Company Number: US-PFIZER INC-2018358086

PATIENT
  Age: 70 Year

DRUGS (1)
  1. IBRANCE [Suspect]
     Active Substance: PALBOCICLIB
     Dosage: UNK

REACTIONS (6)
  - Pruritus generalised [Unknown]
  - Hypersensitivity [Unknown]
  - Rash papular [Unknown]
  - Insomnia [Unknown]
  - Dry skin [Unknown]
  - Fatigue [Unknown]
